FAERS Safety Report 9649479 (Version 1)
Quarter: 2013Q4

REPORT INFORMATION
  Report Type: Spontaneous
  Country: GB (occurrence: None)
  Receive Date: 20131010
  Receipt Date: 20131010
  Transmission Date: 20140711
  Serious: Yes (Other)
  Sender: FDA-Public Use
  Company Number: E2B_00001072

PATIENT
  Age: 27 Year
  Sex: Male

DRUGS (6)
  1. LEVETIRACETAM [Suspect]
  2. SODIUM VALPROATE [Concomitant]
  3. CLOBAZAM [Concomitant]
  4. DILANTIN [Concomitant]
  5. DEXAMETHAZONE [Concomitant]
  6. TEMOZOLOMIDE [Concomitant]

REACTIONS (1)
  - Epilepsy [None]
